FAERS Safety Report 22300734 (Version 2)
Quarter: 2023Q4

REPORT INFORMATION
  Report Type: Report from Study
  Country: US (occurrence: US)
  Receive Date: 20230509
  Receipt Date: 20231030
  Transmission Date: 20240110
  Serious: No
  Sender: FDA-Public Use
  Company Number: US-SA-SAC20230504000741

PATIENT
  Age: 44 Year
  Sex: Female

DRUGS (2)
  1. DUPILUMAB [Suspect]
     Active Substance: DUPILUMAB
     Indication: Chronic sinusitis
     Dosage: 300 MG, QOW
     Route: 058
     Dates: start: 20220830
  2. DUPILUMAB [Suspect]
     Active Substance: DUPILUMAB
     Indication: Nasal polyps

REACTIONS (5)
  - Dry skin [Not Recovered/Not Resolved]
  - Pruritus [Not Recovered/Not Resolved]
  - Erythema [Unknown]
  - Rash [Not Recovered/Not Resolved]
  - Drug effective for unapproved indication [Unknown]
